FAERS Safety Report 12702353 (Version 1)
Quarter: 2016Q3

REPORT INFORMATION
  Report Type: Other
  Country: US (occurrence: US)
  Receive Date: 20160831
  Receipt Date: 20160831
  Transmission Date: 20161109
  Serious: No
  Sender: FDA-Public Use
  Company Number: US-TRIS PHARMA, INC.-1056910

PATIENT
  Age: 51 Year
  Sex: Female
  Weight: 127.27 kg

DRUGS (1)
  1. IBUPROFEN ORAL SUSPENSION DROPS [Suspect]
     Active Substance: IBUPROFEN
     Route: 048

REACTIONS (2)
  - Throat irritation [None]
  - Glossodynia [None]

NARRATIVE: CASE EVENT DATE: 20150805
